FAERS Safety Report 7002005-3 (Version None)
Quarter: 2010Q3

REPORT INFORMATION
  Report Type: 
  Country: None (occurrence: None)
  Receive Date: 20100920
  Receipt Date: 20100909
  Transmission Date: 20110219
  Serious: Yes (Other)
  Sender: FDA-Public Use
  Company Number: B0674437A

PATIENT
  Sex: Male

DRUGS (1)
  1. ARRANON [Suspect]
     Route: 042

REACTIONS (1)
  - LIVER FUNCTION TEST ABNORMAL [None]
